FAERS Safety Report 24090361 (Version 4)
Quarter: 2024Q4

REPORT INFORMATION
  Report Type: Spontaneous
  Country: CA (occurrence: CA)
  Receive Date: 20240715
  Receipt Date: 20241002
  Transmission Date: 20250115
  Serious: Yes (Other)
  Sender: CELLTRION
  Company Number: CA-CELLTRION INC.-2024CA016665

PATIENT

DRUGS (5)
  1. YUFLYMA [Suspect]
     Active Substance: ADALIMUMAB-AATY
     Indication: Ankylosing spondylitis
     Dosage: UNKNOWN START DATE; 40MG SUBCUTANEOUSLY EVERY 2 WEEKS
     Route: 058
     Dates: start: 202402
  2. YUFLYMA [Suspect]
     Active Substance: ADALIMUMAB-AATY
     Dosage: 40MG SUBCUTANEOUSLY EVERY 2 WEEKS
     Route: 058
  3. YUFLYMA [Suspect]
     Active Substance: ADALIMUMAB-AATY
     Dosage: JUN 25TH; 40MG SUBCUTANEOUSLY EVERY 2 WEEKS
     Route: 058
  4. YUFLYMA [Suspect]
     Active Substance: ADALIMUMAB-AATY
     Dosage: JULY 4TH; 40MG SUBCUTANEOUSLY EVERY 2 WEEKS
     Route: 058
     Dates: start: 20240704
  5. YUFLYMA [Suspect]
     Active Substance: ADALIMUMAB-AATY
     Dosage: YUFLYMA 40MG SC Q 2 WEEKS
     Route: 058
     Dates: start: 20240828

REACTIONS (7)
  - Uveitis [Recovering/Resolving]
  - Condition aggravated [Recovering/Resolving]
  - Eye pain [Recovering/Resolving]
  - Insurance issue [Unknown]
  - Product distribution issue [Unknown]
  - Inappropriate schedule of product administration [Recovering/Resolving]
  - Product dose omission issue [Unknown]

NARRATIVE: CASE EVENT DATE: 20240701
